FAERS Safety Report 7608161-8 (Version None)
Quarter: 2011Q3

REPORT INFORMATION
  Report Type: 
  Country: None (occurrence: None)
  Receive Date: 20110714
  Receipt Date: 20110707
  Transmission Date: 20111222
  Serious: Yes (Hospitalization)
  Sender: FDA-Public Use
  Company Number: FR-B.I. PHARMACEUTICALS,INC./RIDGEFIELD-2011-FF-00666FF

PATIENT
  Sex: Female

DRUGS (4)
  1. SPIRIVA [Suspect]
     Route: 055
     Dates: end: 20110216
  2. ISOPTIN [Concomitant]
  3. ENTOCORT EC [Suspect]
     Dates: start: 20100801, end: 20110216
  4. BONIVA [Concomitant]

REACTIONS (3)
  - WEIGHT INCREASED [None]
  - ASTHENIA [None]
  - MUSCULOSKELETAL PAIN [None]
